FAERS Safety Report 4363139-5 (Version None)
Quarter: 2004Q2

REPORT INFORMATION
  Report Type: 
  Country: None (occurrence: None)
  Receive Date: 20040517
  Receipt Date: 20040218
  Transmission Date: 20050107
  Serious: No
  Sender: FDA-Public Use
  Company Number: S04-USA-00952-01

PATIENT
  Age: 81 Year
  Sex: Male

DRUGS (6)
  1. NAMENDA [Suspect]
     Indication: DEMENTIA ALZHEIMER'S TYPE
     Dosage: 5 MG QD PO
     Route: 048
     Dates: start: 20040204, end: 20040210
  2. NAMENDA [Suspect]
     Indication: DEMENTIA ALZHEIMER'S TYPE
     Dosage: 10 MG QD PO
     Route: 048
     Dates: start: 20040211, end: 20040214
  3. AMOXICILLIN [Concomitant]
  4. LOTREL [Concomitant]
  5. ATIVAN [Concomitant]
  6. SYNTHROID [Concomitant]

REACTIONS (3)
  - FATIGUE [None]
  - SCREAMING [None]
  - SOCIAL AVOIDANT BEHAVIOUR [None]
